FAERS Safety Report 6088629-9 (Version None)
Quarter: 2009Q1

REPORT INFORMATION
  Report Type: 
  Country: None (occurrence: None)
  Receive Date: 20090224
  Receipt Date: 20090213
  Transmission Date: 20090719
  Serious: Yes (Death, Life-Threatening)
  Sender: FDA-Public Use
  Company Number: CN-PFIZER INC-2009169735

PATIENT

DRUGS (2)
  1. SULPERAZON [Suspect]
     Indication: LUNG INFECTION
  2. LEVOFLOXACIN [Concomitant]

REACTIONS (2)
  - EPIDERMOLYSIS BULLOSA [None]
  - LUNG INFECTION [None]
